FAERS Safety Report 7500678-X (Version None)
Quarter: 2011Q2

REPORT INFORMATION
  Report Type: 
  Country: None (occurrence: None)
  Receive Date: 20110524
  Receipt Date: 20110513
  Transmission Date: 20111010
  Serious: Yes (Hospitalization, Disabling)
  Sender: FDA-Public Use
  Company Number: US-MERCK-1012USA03784

PATIENT
  Age: 54 Year
  Sex: Female
  Weight: 56 kg

DRUGS (5)
  1. FOSAMAX [Suspect]
     Route: 048
     Dates: start: 20010409, end: 20080214
  2. ALENDRONATE SODIUM [Suspect]
     Indication: OSTEOPOROSIS
     Route: 048
     Dates: start: 20080214, end: 20090120
  3. FOSAMAX [Suspect]
     Indication: OSTEOPOROSIS
     Route: 048
     Dates: start: 19970507, end: 20010409
  4. FOSAMAX [Suspect]
     Indication: OSTEOPENIA
     Route: 048
     Dates: start: 19970507, end: 20010409
  5. FOSAMAX [Suspect]
     Route: 048
     Dates: start: 20010409, end: 20080214

REACTIONS (40)
  - HYPERLIPIDAEMIA [None]
  - FOOT FRACTURE [None]
  - ANXIETY [None]
  - COLITIS COLLAGENOUS [None]
  - LEIOMYOMA [None]
  - MITRAL VALVE INCOMPETENCE [None]
  - COLONIC POLYP [None]
  - CAROTID ARTERY DISEASE [None]
  - FEMUR FRACTURE [None]
  - BONE DENSITY DECREASED [None]
  - MASS [None]
  - INTERVERTEBRAL DISC DEGENERATION [None]
  - TOOTH DISORDER [None]
  - TENDON DISORDER [None]
  - SPIGELIAN HERNIA [None]
  - HAEMATOCHEZIA [None]
  - LEFT VENTRICULAR DYSFUNCTION [None]
  - DYSPEPSIA [None]
  - SYNOVITIS [None]
  - MUSCULOSKELETAL PAIN [None]
  - STRESS FRACTURE [None]
  - GASTROINTESTINAL ANGIODYSPLASIA [None]
  - INSOMNIA [None]
  - OSTEOARTHRITIS [None]
  - LYMPHOID TISSUE HYPERPLASIA [None]
  - UTERINE DISORDER [None]
  - TRICUSPID VALVE INCOMPETENCE [None]
  - HYPERTENSION [None]
  - ABDOMINAL PAIN LOWER [None]
  - LEFT ATRIAL DILATATION [None]
  - DIARRHOEA [None]
  - OSTEOPOROSIS [None]
  - CAROTID BRUIT [None]
  - PAIN IN EXTREMITY [None]
  - DIVERTICULUM [None]
  - GENERALISED ANXIETY DISORDER [None]
  - BREAST CALCIFICATIONS [None]
  - BACK PAIN [None]
  - BURSITIS [None]
  - MYALGIA [None]
